FAERS Safety Report 16169990 (Version 1)
Quarter: 2019Q2

REPORT INFORMATION
  Report Type: Spontaneous
  Country: US (occurrence: US)
  Receive Date: 20190408
  Receipt Date: 20190408
  Transmission Date: 20190711
  Serious: No
  Sender: FDA-Public Use
  Company Number: US-009507513-1903USA010305

PATIENT
  Age: 51 Year
  Sex: Male
  Weight: 96 kg

DRUGS (6)
  1. MICAFUNGIN. [Concomitant]
     Active Substance: MICAFUNGIN SODIUM
     Indication: ANTIFUNGAL PROPHYLAXIS
     Dosage: 150 MILLIGRAM, DAILY
  2. VORICONAZOLE. [Concomitant]
     Active Substance: VORICONAZOLE
     Dosage: 500 MILLIGRAM, TWICE DAILY
  3. VORICONAZOLE. [Concomitant]
     Active Substance: VORICONAZOLE
     Indication: INFECTIVE ANEURYSM
     Dosage: 400 MILLIGRAM, TWICE DAILY
  4. NOXAFIL [Suspect]
     Active Substance: POSACONAZOLE
     Indication: INFECTIVE ANEURYSM
     Dosage: 400 MILLIGRAM, DAILY
     Route: 048
  5. VORICONAZOLE. [Concomitant]
     Active Substance: VORICONAZOLE
     Dosage: 300 MILLIGRAM, THREE TIMES DAILY
  6. VORICONAZOLE. [Concomitant]
     Active Substance: VORICONAZOLE
     Dosage: 400 MILLIGRAM, THREE TIMES DAILY

REACTIONS (2)
  - Drug effective for unapproved indication [Unknown]
  - Product use in unapproved indication [Unknown]
